FAERS Safety Report 5901868-X (Version None)
Quarter: 2008Q3

REPORT INFORMATION
  Report Type: 
  Country: None (occurrence: None)
  Receive Date: 20080929
  Receipt Date: 20080617
  Transmission Date: 20090109
  Serious: Yes (Hospitalization)
  Sender: FDA-Public Use
  Company Number: JP-BAYER-200811049BYL

PATIENT
  Age: 71 Year
  Sex: Female
  Weight: 51 kg

DRUGS (12)
  1. FLUDARA [Suspect]
     Indication: FOLLICLE CENTRE LYMPHOMA, FOLLICULAR GRADE I, II, III RECURRENT
     Route: 048
     Dates: start: 20071126, end: 20071128
  2. FLUDARA [Suspect]
     Route: 048
     Dates: start: 20071217, end: 20071219
  3. FLUDARA [Suspect]
     Route: 048
     Dates: start: 20080220, end: 20080222
  4. FLUDARA [Suspect]
     Route: 048
     Dates: start: 20080107, end: 20080109
  5. ENDOXAN [Concomitant]
     Indication: FOLLICLE CENTRE LYMPHOMA, FOLLICULAR GRADE I, II, III RECURRENT
     Route: 065
     Dates: start: 20071126, end: 20071128
  6. ENDOXAN [Concomitant]
     Route: 065
     Dates: start: 20071217, end: 20071219
  7. ENDOXAN [Concomitant]
     Route: 065
     Dates: start: 20080220, end: 20080222
  8. ENDOXAN [Concomitant]
     Route: 065
     Dates: start: 20080107, end: 20080109
  9. RITUXAN [Concomitant]
     Indication: FOLLICLE CENTRE LYMPHOMA, FOLLICULAR GRADE I, II, III RECURRENT
     Route: 041
     Dates: start: 20071210
  10. RITUXAN [Concomitant]
     Route: 041
     Dates: start: 20071217
  11. RITUXAN [Concomitant]
     Route: 041
     Dates: start: 20080220
  12. RITUXAN [Concomitant]
     Route: 041
     Dates: start: 20080107

REACTIONS (1)
  - PANCYTOPENIA [None]
